FAERS Safety Report 9220104 (Version 2)
Quarter: 2013Q2

REPORT INFORMATION
  Report Type: Spontaneous
  Country: DE (occurrence: DE)
  Receive Date: 20130409
  Receipt Date: 20130417
  Transmission Date: 20140414
  Serious: Yes (Life-Threatening)
  Sender: FDA-Public Use
  Company Number: DE-B.I. PHARMACEUTICALS,INC./RIDGEFIELD-2013-DE-01006DE

PATIENT
  Age: 71 Year
  Sex: Male
  Weight: 95 kg

DRUGS (4)
  1. AGGRENOX [Suspect]
     Indication: CEREBRAL INFARCTION
     Dosage: 2 ANZ
     Dates: start: 2008
  2. PLAVIX [Concomitant]
     Indication: CEREBRAL INFARCTION
     Dosage: 75 MG
     Dates: start: 1999
  3. SIMVAHEXAL [Concomitant]
     Indication: BLOOD CHOLESTEROL
     Dosage: 80 MG
     Dates: start: 2008
  4. VALSARTAN [Concomitant]
     Indication: BLOOD PRESSURE
     Dosage: 160/12.5
     Dates: start: 2008

REACTIONS (1)
  - Prostate cancer [Not Recovered/Not Resolved]
